FAERS Safety Report 4808851-6 (Version None)
Quarter: 2005Q4

REPORT INFORMATION
  Report Type: 
  Country: None (occurrence: None)
  Receive Date: 20051025
  Receipt Date: 20050819
  Transmission Date: 20060501
  Serious: Yes (Other)
  Sender: FDA-Public Use
  Company Number: PHEH2005US09291

PATIENT
  Age: 84 Year
  Sex: Female

DRUGS (3)
  1. ZOMETA [Suspect]
     Indication: BREAST CANCER METASTATIC
     Dosage: 4 MG, Q4WEEKS
     Route: 042
     Dates: start: 20021204, end: 20050615
  2. RADIATION THERAPY [Concomitant]
     Indication: BONE PAIN
     Dosage: 3000 CGY, RIGHT HUMERUS
     Dates: end: 20041101
  3. AROMASIN [Concomitant]
     Indication: BREAST CANCER METASTATIC
     Dosage: 25 MG, QD
     Dates: start: 20020101

REACTIONS (12)
  - BONE DEBRIDEMENT [None]
  - BONE DISORDER [None]
  - BONE SCAN ABNORMAL [None]
  - EXCESSIVE GRANULATION TISSUE [None]
  - ORAL SURGERY [None]
  - OSTEOMYELITIS [None]
  - OSTEONECROSIS [None]
  - PAIN IN JAW [None]
  - POST PROCEDURAL HAEMORRHAGE [None]
  - TOOTH EXTRACTION [None]
  - TOOTHACHE [None]
  - TRIGEMINAL NEURALGIA [None]
